FAERS Safety Report 10168204 (Version 1)
Quarter: 2014Q2

REPORT INFORMATION
  Report Type: Spontaneous
  Country: US (occurrence: US)
  Receive Date: 20140512
  Receipt Date: 20140512
  Transmission Date: 20141212
  Serious: No
  Sender: FDA-Public Use
  Company Number: US-ASTRAZENECA-2013SE66449

PATIENT
  Age: 55 Year
  Sex: Female
  Weight: 56.2 kg

DRUGS (4)
  1. FASLODEX [Suspect]
     Indication: BREAST CANCER
     Route: 030
     Dates: start: 20130718
  2. FASLODEX [Suspect]
     Indication: BREAST CANCER
     Route: 030
     Dates: start: 20130801
  3. FASLODEX [Suspect]
     Indication: BREAST CANCER
     Route: 030
     Dates: start: 20130815
  4. RADIATION [Concomitant]
     Indication: NEOPLASM MALIGNANT
     Route: 050
     Dates: end: 20130827

REACTIONS (8)
  - Liver disorder [Not Recovered/Not Resolved]
  - Feeling abnormal [Not Recovered/Not Resolved]
  - Adverse event [Not Recovered/Not Resolved]
  - Hepatic enzyme increased [Not Recovered/Not Resolved]
  - Abdominal distension [Not Recovered/Not Resolved]
  - Swelling [Not Recovered/Not Resolved]
  - Discomfort [Not Recovered/Not Resolved]
  - Jaundice [Not Recovered/Not Resolved]
